FAERS Safety Report 22929858 (Version 7)
Quarter: 2025Q4

REPORT INFORMATION
  Report Type: Spontaneous
  Country: US (occurrence: US)
  Receive Date: 20230911
  Receipt Date: 20251119
  Transmission Date: 20260118
  Serious: Yes (Other)
  Sender: PFIZER
  Company Number: US-PFIZER INC-PV202300151400

PATIENT
  Age: 76 Year
  Sex: Female

DRUGS (1)
  1. IBRANCE [Suspect]
     Active Substance: PALBOCICLIB
     Indication: Breast cancer female
     Dosage: BY MOUTH, DAILY, 3 WEEKS ON AND 7 DAYS OFF
     Route: 048

REACTIONS (3)
  - Cataract [Unknown]
  - Hypersensitivity [Unknown]
  - Somnolence [Unknown]
